FAERS Safety Report 5394392-7 (Version None)
Quarter: 2007Q3

REPORT INFORMATION
  Report Type: 
  Country: None (occurrence: None)
  Receive Date: 20070723
  Receipt Date: 20070716
  Transmission Date: 20080115
  Serious: Yes (Hospitalization)
  Sender: FDA-Public Use
  Company Number: US-SANOFI-SYNTHELABO-F03200700121

PATIENT
  Sex: Male
  Weight: 117.9 kg

DRUGS (9)
  1. POTASSIUM CHLORIDE [Concomitant]
     Dosage: UNK
     Route: 065
  2. NAPROSYN [Concomitant]
     Dosage: UNK
     Route: 048
  3. LASIX [Concomitant]
     Dosage: UNK
     Route: 065
  4. OXALIPLATIN [Suspect]
     Indication: OESOPHAGEAL ADENOCARCINOMA
     Dosage: 93 MG (40 MG/M2)
     Route: 042
     Dates: start: 20070508, end: 20070508
  5. CAPECITABINE [Suspect]
     Indication: OESOPHAGEAL ADENOCARCINOMA
     Dosage: 2150 MG (1000 MG/M2)
     Route: 048
     Dates: start: 20070410, end: 20070508
  6. DOCETAXEL [Suspect]
     Indication: OESOPHAGEAL ADENOCARCINOMA
     Dosage: 46 MG (20 MG/M2)
     Route: 042
     Dates: start: 20070508, end: 20070508
  7. INSULIN [Concomitant]
     Dosage: UNK
     Route: 065
  8. GLYBURIDE [Concomitant]
     Dosage: UNK
     Route: 048
  9. GLUCOPHAGE [Concomitant]
     Dosage: UNK
     Route: 048

REACTIONS (7)
  - DEHYDRATION [None]
  - DYSPHAGIA [None]
  - MALNUTRITION [None]
  - NAUSEA [None]
  - OESOPHAGITIS [None]
  - PYREXIA [None]
  - VOMITING [None]
